FAERS Safety Report 4941469-3 (Version None)
Quarter: 2006Q1

REPORT INFORMATION
  Report Type: 
  Country: None (occurrence: None)
  Receive Date: 20060313
  Receipt Date: 20050930
  Transmission Date: 20060701
  Serious: Yes (Death, Hospitalization, Other)
  Sender: FDA-Public Use
  Company Number: US-MERCK-0510USA01389

PATIENT
  Age: 79 Year
  Sex: Female

DRUGS (1)
  1. VIOXX [Suspect]
     Route: 048
     Dates: end: 20000419

REACTIONS (12)
  - AORTIC VALVE SCLEROSIS [None]
  - CARDIOVASCULAR DISORDER [None]
  - CEREBROVASCULAR ACCIDENT [None]
  - DEATH [None]
  - DRUG TOXICITY [None]
  - HYPERCAPNIA [None]
  - LIVER DISORDER [None]
  - MYOCARDIAL INFARCTION [None]
  - PULMONARY EMBOLISM [None]
  - RENAL DISORDER [None]
  - RESPIRATORY FAILURE [None]
  - VENTRICULAR TACHYCARDIA [None]
